FAERS Safety Report 6474418-X (Version None)
Quarter: 2009Q4

REPORT INFORMATION
  Report Type: 
  Country: None (occurrence: None)
  Receive Date: 20091204
  Receipt Date: 20091201
  Transmission Date: 20100525
  Serious: Yes (Hospitalization)
  Sender: FDA-Public Use
  Company Number: PR-ELI_LILLY_AND_COMPANY-US200910004992

PATIENT
  Sex: Female

DRUGS (2)
  1. HUMALOG [Suspect]
  2. HUMULIN 70/30 [Suspect]

REACTIONS (1)
  - HOSPITALISATION [None]
